FAERS Safety Report 25153746 (Version 1)
Quarter: 2025Q2

REPORT INFORMATION
  Report Type: Spontaneous
  Country: US (occurrence: US)
  Receive Date: 20250403
  Receipt Date: 20250403
  Transmission Date: 20250716
  Serious: Yes (Other)
  Sender: GERON CORP
  Company Number: US-GERON CORPORATION-US-GER-25-000039

PATIENT
  Age: 66 Year
  Sex: Female
  Weight: 75 kg

DRUGS (1)
  1. RYTELO [Suspect]
     Active Substance: IMETELSTAT SODIUM
     Indication: Myelodysplastic syndrome
     Route: 065
     Dates: start: 20241230

REACTIONS (1)
  - Neutropenia [Unknown]
